FAERS Safety Report 8244303-1 (Version None)
Quarter: 2012Q1

REPORT INFORMATION
  Report Type: 
  Country: None (occurrence: None)
  Receive Date: 20120309
  Receipt Date: 20100128
  Transmission Date: 20120608
  Serious: Yes (Other)
  Sender: FDA-Public Use
  Company Number: PHEH2010US01293

PATIENT
  Age: 59 Year
  Sex: Female

DRUGS (9)
  1. DICLOFENAC POTASSIUM [Concomitant]
  2. MIRALAX [Concomitant]
  3. HYDROCHLOROTHIAZIDE [Concomitant]
  4. XANAX [Concomitant]
  5. EXTAVIA [Suspect]
     Indication: MULTIPLE SCLEROSIS
     Dosage: 0.25 MG, QOD, SUBCUTANEOUS
     Route: 058
  6. CADUET [Concomitant]
  7. PROVIGIL [Concomitant]
  8. NEURONTIN [Concomitant]
  9. PROZAC [Concomitant]

REACTIONS (3)
  - DEPRESSION [None]
  - INFLUENZA LIKE ILLNESS [None]
  - PAIN [None]
